FAERS Safety Report 4708822-4 (Version None)
Quarter: 2005Q3

REPORT INFORMATION
  Report Type: 
  Country: None (occurrence: None)
  Receive Date: 20050707
  Receipt Date: 20050630
  Transmission Date: 20060218
  Serious: Yes (Hospitalization)
  Sender: FDA-Public Use
  Company Number: FR-ABBOTT-05P-056-0304727-00

PATIENT
  Age: 77 Year
  Sex: Male

DRUGS (3)
  1. NAXY TABLETS [Suspect]
     Indication: BRONCHITIS ACUTE
     Route: 048
     Dates: start: 20050404, end: 20050414
  2. AMBROXOL MERCK [Suspect]
     Indication: DRUG USE FOR UNKNOWN INDICATION
     Route: 048
     Dates: start: 20050404, end: 20050414
  3. PREDNISOLONE SODIUM PHOSPHATE [Concomitant]
     Indication: DRUG USE FOR UNKNOWN INDICATION
     Dates: start: 20050404, end: 20050409

REACTIONS (6)
  - CARDIAC FAILURE [None]
  - CREPITATIONS [None]
  - DYSPNOEA [None]
  - OEDEMA [None]
  - RASH [None]
  - VASCULAR PURPURA [None]
